FAERS Safety Report 9110089 (Version 2)
Quarter: 2013Q1

REPORT INFORMATION
  Report Type: Spontaneous
  Country: CN (occurrence: CN)
  Receive Date: 20130222
  Receipt Date: 20130306
  Transmission Date: 20140127
  Serious: Yes (Other)
  Sender: FDA-Public Use
  Company Number: CN-ROCHE-1192618

PATIENT
  Sex: Male

DRUGS (5)
  1. RITUXIMAB [Suspect]
     Indication: DIFFUSE LARGE B-CELL LYMPHOMA
     Route: 065
  2. CYCLOPHOSPHAMIDE [Concomitant]
     Indication: DIFFUSE LARGE B-CELL LYMPHOMA
  3. DOXORUBICIN [Concomitant]
     Indication: DIFFUSE LARGE B-CELL LYMPHOMA
  4. VINCRISTINE [Concomitant]
     Indication: DIFFUSE LARGE B-CELL LYMPHOMA
  5. PREDNISONE [Concomitant]
     Indication: DIFFUSE LARGE B-CELL LYMPHOMA

REACTIONS (2)
  - Metastases to liver [Not Recovered/Not Resolved]
  - Drug ineffective [Unknown]
